FAERS Safety Report 15083932 (Version 8)
Quarter: 2019Q2

REPORT INFORMATION
  Report Type: Report from Study
  Country: US (occurrence: US)
  Receive Date: 20180628
  Receipt Date: 20190507
  Transmission Date: 20190711
  Serious: Yes (Other)
  Sender: FDA-Public Use
  Company Number: US-CLOVIS ONCOLOGY-CLO-2018-000731

PATIENT
  Age: 71 Year
  Sex: Female

DRUGS (1)
  1. RUBRACA [Suspect]
     Active Substance: RUCAPARIB CAMSYLATE
     Indication: OVARIAN CANCER
     Dosage: 600 MG, BID
     Route: 048
     Dates: start: 20180613

REACTIONS (24)
  - Anaemia [Recovered/Resolved]
  - Nasopharyngitis [Unknown]
  - Weight increased [Unknown]
  - Blood glucose decreased [Unknown]
  - Decreased appetite [Unknown]
  - Increased appetite [Unknown]
  - Sleep disorder [Unknown]
  - Dyspepsia [Unknown]
  - Sciatica [Recovering/Resolving]
  - Pain [Unknown]
  - Incisional hernia [Not Recovered/Not Resolved]
  - Limb injury [Unknown]
  - Abdominal discomfort [Unknown]
  - Diarrhoea [Unknown]
  - Abdominal pain upper [Recovering/Resolving]
  - Product dose omission [Unknown]
  - Fatigue [Not Recovered/Not Resolved]
  - Intestinal obstruction [Unknown]
  - Nausea [Unknown]
  - Epistaxis [Unknown]
  - Back pain [Recovering/Resolving]
  - Computerised tomogram abnormal [Unknown]
  - Constipation [Not Recovered/Not Resolved]
  - Dysgeusia [Unknown]

NARRATIVE: CASE EVENT DATE: 2018
